FAERS Safety Report 8242043 (Version 11)
Quarter: 2013Q2

REPORT INFORMATION
  Report Type: Report from Study
  Country: SE (occurrence: SE)
  Receive Date: 20111111
  Receipt Date: 20130417
  Transmission Date: 20140414
  Serious: Yes (Hospitalization)
  Sender: FDA-Public Use
  Company Number: SE-ROCHE-1000218

PATIENT
  Age: 72 Year
  Sex: Female
  Weight: 78 kg

DRUGS (9)
  1. VEMURAFENIB [Suspect]
     Indication: METASTATIC MALIGNANT MELANOMA
     Dosage: DATE OF LAST DOSE PRIOR TO EVENT: 11/SEP/2012
     Route: 048
     Dates: start: 20110729, end: 20110913
  2. VEMURAFENIB [Suspect]
     Route: 048
     Dates: start: 20111012
  3. ALVEDON [Concomitant]
     Route: 065
     Dates: start: 20101203
  4. AMLODIPIN [Concomitant]
     Route: 065
     Dates: start: 20110125, end: 20110926
  5. CITODON [Concomitant]
     Route: 065
     Dates: start: 20110706, end: 20110915
  6. EMOVAT [Concomitant]
     Route: 065
     Dates: start: 20110708, end: 20110926
  7. ENALAPRIL [Concomitant]
     Route: 065
     Dates: start: 20101029
  8. SELOKEN ZOC [Concomitant]
     Route: 065
     Dates: start: 20110607, end: 20111107
  9. SALURES [Concomitant]
     Route: 065
     Dates: start: 20101029, end: 20110916

REACTIONS (1)
  - Pulmonary embolism [Recovered/Resolved]
